FAERS Safety Report 10415107 (Version 1)
Quarter: 2014Q3

REPORT INFORMATION
  Report Type: Spontaneous
  Country: US (occurrence: None)
  Receive Date: 20140827
  Receipt Date: 20140827
  Transmission Date: 20150326
  Serious: No
  Sender: FDA-Public Use
  Company Number: None

PATIENT
  Age: 67 Year
  Sex: Female

DRUGS (25)
  1. ONDANSETRON [Concomitant]
     Active Substance: ONDANSETRON
  2. ALLOPURINOL. [Concomitant]
     Active Substance: ALLOPURINOL
  3. OMNIPQUE [Concomitant]
  4. PROAIR HFA [Concomitant]
     Active Substance: ALBUTEROL SULFATE
  5. PROCHLORPERAZINE. [Concomitant]
     Active Substance: PROCHLORPERAZINE
  6. SULFAMETHOXAZOLE-TRIMETHOPRAM [Concomitant]
  7. HYDROMORPHONE [Concomitant]
     Active Substance: HYDROMORPHONE
  8. ACETAMINOPHEN-CODEINE [Concomitant]
     Active Substance: ACETAMINOPHEN\CODEINE PHOSPHATE
  9. MEDROXYPROGESTERONE [Concomitant]
     Active Substance: MEDROXYPROGESTERONE
  10. METRONIDAZOLE. [Concomitant]
     Active Substance: METRONIDAZOLE
  11. AUGMENTIN [Suspect]
     Active Substance: AMOXICILLIN\CLAVULANATE POTASSIUM
  12. BACTRIM [Concomitant]
     Active Substance: SULFAMETHOXAZOLE\TRIMETHOPRIM
  13. CLARITHROMYCIN. [Concomitant]
     Active Substance: CLARITHROMYCIN
  14. ASPIRIN. [Concomitant]
     Active Substance: ASPIRIN
  15. OMEPRAZOLE. [Concomitant]
     Active Substance: OMEPRAZOLE
  16. NAPROXEN. [Concomitant]
     Active Substance: NAPROXEN
  17. DEXAMETHASONE. [Concomitant]
     Active Substance: DEXAMETHASONE
  18. WARFARIN [Concomitant]
     Active Substance: WARFARIN
  19. FERROUS FLUCONATE [Concomitant]
  20. CYCLOBENZAPRINE [Concomitant]
     Active Substance: CYCLOBENZAPRINE
  21. REVLIMID [Suspect]
     Active Substance: LENALIDOMIDE
     Indication: PLASMA CELL MYELOMA
     Dosage: 10 MG, DAILY X21D/28D, ORALLY
     Route: 048
     Dates: start: 20131224
  22. LORAZEPAM. [Concomitant]
     Active Substance: LORAZEPAM
  23. ACYCLOVIR. [Concomitant]
     Active Substance: ACYCLOVIR
  24. ESTRADILOL [Concomitant]
  25. CALCIUM CARBONATE/VITAMIN D3 [Concomitant]

REACTIONS (5)
  - Deep vein thrombosis [None]
  - Discomfort [None]
  - Peripheral swelling [None]
  - Bronchitis [None]
  - Pneumonia [None]

NARRATIVE: CASE EVENT DATE: 20140820
